FAERS Safety Report 15988987 (Version 1)
Quarter: 2019Q1

REPORT INFORMATION
  Report Type: Report from Study
  Country: CA (occurrence: CA)
  Receive Date: 20190221
  Receipt Date: 20190221
  Transmission Date: 20190418
  Serious: Yes (Other)
  Sender: FDA-Public Use
  Company Number: CA-ROCHE-1794059

PATIENT
  Age: 46 Year
  Sex: Female
  Weight: 69.92 kg

DRUGS (9)
  1. RITUXAN [Suspect]
     Active Substance: RITUXIMAB
     Indication: RHEUMATOID ARTHRITIS
     Dosage: DATE OF LAST RITUXIMAB DOSE: 17/APR/2017
     Route: 042
     Dates: start: 20160218
  2. METHYLPREDNISOLONE. [Concomitant]
     Active Substance: METHYLPREDNISOLONE
     Indication: PREMEDICATION
     Route: 042
     Dates: start: 20160218
  3. PANTOLOC [Concomitant]
     Active Substance: PANTOPRAZOLE SODIUM
  4. DIPHENHYDRAMINE HCL [Concomitant]
     Active Substance: DIPHENHYDRAMINE HYDROCHLORIDE
     Indication: PREMEDICATION
     Route: 048
     Dates: start: 20160218
  5. CHAMPIX [Concomitant]
     Active Substance: VARENICLINE TARTRATE
  6. XELJANZ [Concomitant]
     Active Substance: TOFACITINIB CITRATE
  7. ACETAMINOPHEN. [Concomitant]
     Active Substance: ACETAMINOPHEN
     Indication: PREMEDICATION
     Route: 048
     Dates: start: 20160218
  8. PREDNISONE. [Concomitant]
     Active Substance: PREDNISONE
  9. LASIX [Concomitant]
     Active Substance: FUROSEMIDE

REACTIONS (13)
  - Menstruation irregular [Not Recovered/Not Resolved]
  - Rheumatoid arthritis [Unknown]
  - Menstrual disorder [Unknown]
  - Anaemia [Recovered/Resolved]
  - Hepatic pain [Recovered/Resolved]
  - Musculoskeletal stiffness [Recovering/Resolving]
  - Rheumatoid arthritis [Not Recovered/Not Resolved]
  - Weight decreased [Unknown]
  - Nodule [Not Recovered/Not Resolved]
  - Peripheral swelling [Recovering/Resolving]
  - Bronchitis [Not Recovered/Not Resolved]
  - Vaginal infection [Unknown]
  - Urinary tract infection [Unknown]

NARRATIVE: CASE EVENT DATE: 201604
